FAERS Safety Report 24251657 (Version 1)
Quarter: 2024Q3

REPORT INFORMATION
  Report Type: Report from Study
  Country: DE (occurrence: DE)
  Receive Date: 20240827
  Receipt Date: 20240827
  Transmission Date: 20241016
  Serious: Yes (Hospitalization)
  Sender: ABBVIE
  Company Number: DE-ABBVIE-5886214

PATIENT
  Age: 74 Year
  Sex: Female

DRUGS (11)
  1. CARBIDOPA\LEVODOPA [Suspect]
     Active Substance: CARBIDOPA\LEVODOPA
     Indication: Parkinson^s disease
     Route: 050
     Dates: start: 20200903
  2. CARBIDOPA\LEVODOPA [Suspect]
     Active Substance: CARBIDOPA\LEVODOPA
  3. METHIMAZOLE [Concomitant]
     Active Substance: METHIMAZOLE
     Indication: Product used for unknown indication
     Route: 048
  4. PANTOPRAZOLE [Concomitant]
     Active Substance: PANTOPRAZOLE
     Indication: Product used for unknown indication
     Route: 048
  5. POLYETHYLENE GLYCOLS [Concomitant]
     Active Substance: POLYETHYLENE GLYCOLS
     Indication: Product used for unknown indication
     Route: 048
  6. VITAMIN D3 [Concomitant]
     Active Substance: CHOLECALCIFEROL
     Indication: Product used for unknown indication
  7. ESCITALOPRAM [Concomitant]
     Active Substance: ESCITALOPRAM OXALATE
     Indication: Product used for unknown indication
     Route: 048
  8. GABAPENTIN [Concomitant]
     Active Substance: GABAPENTIN
     Indication: Product used for unknown indication
     Dosage: TIME INTERVAL: 0.33333333 DAYS
     Route: 048
  9. FOLIC ACID [Concomitant]
     Active Substance: FOLIC ACID
     Indication: Fine motor skill dysfunction
     Route: 048
  10. VITAMIN B COMPLEX [Concomitant]
     Active Substance: CYANOCOBALAMIN\DEXPANTHENOL\NIACINAMIDE\PYRIDOXINE HYDROCHLORIDE\RIBOFLAVIN 5^-PHOSPHATE SODIUM\THIA
     Indication: Fine motor skill dysfunction
  11. IBUPROFEN [Concomitant]
     Active Substance: IBUPROFEN
     Indication: Product used for unknown indication
     Route: 048

REACTIONS (30)
  - Mobility decreased [Unknown]
  - Cognitive disorder [Unknown]
  - Gait disturbance [Unknown]
  - Muscle rigidity [Unknown]
  - Contusion [Unknown]
  - Fall [Unknown]
  - Pain [Unknown]
  - Endometrial hyperplasia [Unknown]
  - Anaemia [Unknown]
  - Gastrointestinal motility disorder [Unknown]
  - Depression [Unknown]
  - Device defective [Unknown]
  - Osteoporosis [Unknown]
  - Neurogenic bladder [Unknown]
  - Musculoskeletal stiffness [Unknown]
  - Fine motor skill dysfunction [Recovering/Resolving]
  - Freezing phenomenon [Unknown]
  - Polyneuropathy [Unknown]
  - Spinal osteoarthritis [Unknown]
  - Folate deficiency [Unknown]
  - Weight decreased [Unknown]
  - Dysphagia [Unknown]
  - Hypothyroidism [Unknown]
  - Paraesthesia [Unknown]
  - Head injury [Unknown]
  - Atrophic vulvovaginitis [Unknown]
  - Vitamin B12 deficiency [Unknown]
  - Chronic kidney disease [Unknown]
  - Uterine polyp [Unknown]
  - On and off phenomenon [Unknown]

NARRATIVE: CASE EVENT DATE: 20240201
